FAERS Safety Report 6533361-8 (Version None)
Quarter: 2010Q1

REPORT INFORMATION
  Report Type: 
  Country: None (occurrence: None)
  Receive Date: 20100111
  Receipt Date: 20100105
  Transmission Date: 20100710
  Serious: Yes (Hospitalization)
  Sender: FDA-Public Use
  Company Number: B0624284A

PATIENT
  Sex: Female

DRUGS (5)
  1. HYCAMTIN [Suspect]
     Indication: CERVIX CARCINOMA
     Dosage: 29MG CYCLIC
     Dates: start: 20091113
  2. CARBOPLATIN [Suspect]
     Indication: CERVIX CARCINOMA
     Dosage: 780MG CYCLIC
     Dates: start: 20091113
  3. EFFERALGAN [Concomitant]
     Indication: ABDOMINAL PAIN
  4. SMECTA [Concomitant]
  5. LOPERAMIDE [Concomitant]

REACTIONS (4)
  - ENTEROVESICAL FISTULA [None]
  - HAEMATURIA [None]
  - HAEMORRHAGE URINARY TRACT [None]
  - SEPSIS [None]
